FAERS Safety Report 5337823-0 (Version None)
Quarter: 2007Q2

REPORT INFORMATION
  Report Type: 
  Country: None (occurrence: None)
  Receive Date: 20070308
  Receipt Date: 20070124
  Transmission Date: 20071010
  Serious: No
  Sender: FDA-Public Use
  Company Number: 2006-BP-15145BP

PATIENT
  Age: 84 Year
  Sex: Male
  Weight: 65.77 kg

DRUGS (9)
  1. SPIRIVA [Suspect]
     Indication: CHRONIC OBSTRUCTIVE PULMONARY DISEASE
     Dosage: 18 MCG (18 MCG, 1 PUFF QD), IH
     Route: 055
     Dates: start: 20061121, end: 20061227
  2. ADVAIR DISKUS 100/50 [Concomitant]
  3. PREDNISONE TAB [Concomitant]
  4. ACCUPRIL [Concomitant]
  5. LIPITOR [Concomitant]
  6. TYLENOL PM (TYLENOL PM/01088101/) [Concomitant]
  7. ACIPHEX [Concomitant]
  8. SIMVASTATIN [Concomitant]
  9. LEVAQUIN [Concomitant]

REACTIONS (1)
  - JOINT SWELLING [None]
